FAERS Safety Report 4380482-4 (Version None)
Quarter: 2004Q2

REPORT INFORMATION
  Report Type: 
  Country: None (occurrence: None)
  Receive Date: 20040618
  Receipt Date: 20040608
  Transmission Date: 20050107
  Serious: Yes (Hospitalization)
  Sender: FDA-Public Use
  Company Number: US-JNJFOC-20040602301

PATIENT
  Sex: Female
  Weight: 97.98 kg

DRUGS (13)
  1. REMICADE [Suspect]
     Route: 042
  2. REMICADE [Suspect]
     Indication: CROHN'S DISEASE
     Route: 042
  3. PURINETHOL [Concomitant]
  4. LIBRAX [Concomitant]
  5. LIBRAX [Concomitant]
  6. VITAMIN B-12 [Concomitant]
     Route: 049
  7. FOLIC ACID [Concomitant]
  8. ALLERGY MEDICINE [Concomitant]
  9. PREVACID [Concomitant]
  10. DEPO-PROVERA [Concomitant]
  11. ALEVE [Concomitant]
  12. VICODIN [Concomitant]
  13. VICODIN [Concomitant]

REACTIONS (6)
  - ATELECTASIS [None]
  - HEADACHE [None]
  - LYMPHOCYTOSIS [None]
  - MONONUCLEOSIS SYNDROME [None]
  - PERICARDIAL EFFUSION [None]
  - PYREXIA [None]
